FAERS Safety Report 4416195-X (Version None)
Quarter: 2004Q3

REPORT INFORMATION
  Report Type: 
  Country: None (occurrence: None)
  Receive Date: 20040804
  Receipt Date: 20040804
  Transmission Date: 20050211
  Serious: Yes (Hospitalization)
  Sender: FDA-Public Use
  Company Number: None

PATIENT
  Age: 88 Year
  Sex: Male

DRUGS (1)
  1. ZYVOX [Suspect]
     Indication: ANTI-INFECTIVE THERAPY
     Dosage: 600 MG PO BID CHRONIC THPY
     Route: 048

REACTIONS (3)
  - ANAEMIA [None]
  - DISEASE RECURRENCE [None]
  - THROMBOCYTOPENIA [None]
